FAERS Safety Report 19168933 (Version 1)
Quarter: 2021Q2

REPORT INFORMATION
  Report Type: Spontaneous
  Country: US (occurrence: US)
  Receive Date: 20210421
  Receipt Date: 20210421
  Transmission Date: 20210717
  Serious: No
  Sender: FDA-Public Use
  Company Number: None

PATIENT
  Age: 21 Year
  Sex: Female
  Weight: 68 kg

DRUGS (8)
  1. VIT D [Concomitant]
     Active Substance: VITAMIN D NOS
  2. FERROUS SULFATE. [Concomitant]
     Active Substance: FERROUS SULFATE
  3. LEXAPRO [Concomitant]
     Active Substance: ESCITALOPRAM OXALATE
  4. OMEPRAZOLE. [Concomitant]
     Active Substance: OMEPRAZOLE
  5. MESALAMINE. [Concomitant]
     Active Substance: MESALAMINE
  6. BAMLANIVIMAB 700MG [Suspect]
     Active Substance: BAMLANIVIMAB
     Indication: COVID-19
     Dosage: ?          QUANTITY:110 ML MILLILITRE(S);?
     Route: 042
     Dates: start: 20210415, end: 20210415
  7. VEDOLIZUMAB [Concomitant]
     Active Substance: VEDOLIZUMAB
  8. LOVORA [Concomitant]

REACTIONS (3)
  - Therapy cessation [None]
  - Throat irritation [None]
  - Dyspnoea [None]

NARRATIVE: CASE EVENT DATE: 20210415
